FAERS Safety Report 8065973-7 (Version None)
Quarter: 2012Q1

REPORT INFORMATION
  Report Type: 
  Country: None (occurrence: None)
  Receive Date: 20120117
  Receipt Date: 20120104
  Transmission Date: 20120608
  Serious: Yes (Other)
  Sender: FDA-Public Use
  Company Number: 2012MA000218

PATIENT
  Age: 62 Year
  Sex: Female

DRUGS (2)
  1. SERTRALINE HYDROCHLORIDE [Suspect]
     Indication: DEPRESSION
     Dosage: 50 MG; QD
     Dates: start: 20100501, end: 20100501
  2. CITALOPRAM HYDROBROMIDE [Suspect]
     Indication: DEPRESSION
     Dosage: 20 MG;QD

REACTIONS (6)
  - RESTLESSNESS [None]
  - DELUSION [None]
  - HALLUCINATION, AUDITORY [None]
  - HOSTILITY [None]
  - AGITATION [None]
  - IRRITABILITY [None]
